FAERS Safety Report 5478801-0 (Version None)
Quarter: 2007Q4

REPORT INFORMATION
  Report Type: 
  Country: None (occurrence: None)
  Receive Date: 20071002
  Receipt Date: 20070917
  Transmission Date: 20080405
  Serious: Yes (Hospitalization, Other)
  Sender: FDA-Public Use
  Company Number: 2007US001740

PATIENT
  Age: 16 Year
  Sex: Female
  Weight: 64 kg

DRUGS (12)
  1. PROGRAF [Suspect]
     Indication: RENAL TRANSPLANT
     Dosage: 2.5 MG, BID
     Dates: start: 20050921
  2. ZENAPAX [Suspect]
     Indication: RENAL TRANSPLANT
     Dosage: 60 MG, QOW, IV NOS: 60  MG, QOW, IV NOS : 65 MG, QOW, IV NOS : 65 MG, UID/QD, IV NOS
     Route: 042
     Dates: start: 20050922, end: 20050922
  3. ZENAPAX [Suspect]
     Indication: RENAL TRANSPLANT
     Dosage: 60 MG, QOW, IV NOS: 60  MG, QOW, IV NOS : 65 MG, QOW, IV NOS : 65 MG, UID/QD, IV NOS
     Route: 042
     Dates: start: 20051006, end: 20051006
  4. ZENAPAX [Suspect]
     Indication: RENAL TRANSPLANT
     Dosage: 60 MG, QOW, IV NOS: 60  MG, QOW, IV NOS : 65 MG, QOW, IV NOS : 65 MG, UID/QD, IV NOS
     Route: 042
     Dates: start: 20051020, end: 20051020
  5. ZENAPAX [Suspect]
     Indication: RENAL TRANSPLANT
     Dosage: 60 MG, QOW, IV NOS: 60  MG, QOW, IV NOS : 65 MG, QOW, IV NOS : 65 MG, UID/QD, IV NOS
     Route: 042
     Dates: start: 20051117, end: 20051117
  6. ZENAPAX [Suspect]
     Indication: RENAL TRANSPLANT
     Dosage: 60 MG, QOW, IV NOS: 60  MG, QOW, IV NOS : 65 MG, QOW, IV NOS : 65 MG, UID/QD, IV NOS
     Route: 042
     Dates: start: 20051118, end: 20051118
  7. ZANTAC 150 [Concomitant]
  8. ARANESP [Concomitant]
  9. CLEOCIN        (CLINDAMYCIN HYDROCHLORIDE) [Concomitant]
  10. LISINOPRIL [Concomitant]
  11. ZOSYN [Concomitant]
  12. LEVAQUIN [Concomitant]

REACTIONS (2)
  - ESCHERICHIA BACTERAEMIA [None]
  - ESCHERICHIA URINARY TRACT INFECTION [None]
